FAERS Safety Report 20198009 (Version 1)
Quarter: 2021Q4

REPORT INFORMATION
  Report Type: Spontaneous
  Country: US (occurrence: US)
  Receive Date: 20211217
  Receipt Date: 20211217
  Transmission Date: 20220303
  Serious: No
  Sender: FDA-Public Use
  Company Number: US-ALLERGAN-2111427US

PATIENT
  Sex: Female

DRUGS (1)
  1. PREDNISOLONE [Suspect]
     Active Substance: PREDNISOLONE
     Indication: Product used for unknown indication
     Dosage: ONE DROP THREE TIMES A WEEK IN THE LEFT EYE AND ONE DROP ONCE A WEEK IN THE RIGHT EYE
     Route: 047

REACTIONS (1)
  - Inappropriate schedule of product administration [Unknown]
